FAERS Safety Report 13701764 (Version 6)
Quarter: 2019Q1

REPORT INFORMATION
  Report Type: Report from Study
  Country: DE (occurrence: DE)
  Receive Date: 20170629
  Receipt Date: 20190320
  Transmission Date: 20190417
  Serious: Yes (Hospitalization, Other)
  Sender: FDA-Public Use
  Company Number: PHHY2017DE022105

PATIENT
  Age: 71 Year
  Sex: Male
  Weight: 90 kg

DRUGS (13)
  1. ASS-RATIOPHARM [Concomitant]
     Active Substance: ASPIRIN
     Dosage: 100 MG, QD
     Route: 048
     Dates: start: 201605
  2. QUETIAPIN-RATIOPHARM [Concomitant]
     Indication: DEPRESSION
     Dosage: 100 MG, BID
     Route: 048
     Dates: start: 2006
  3. RISPERIDON-RATIOPHARM [Concomitant]
     Indication: DEPRESSION
  4. QUETIAPIN-RATIOPHARM [Concomitant]
     Indication: DEPRESSION
  5. VOTRIENT [Suspect]
     Active Substance: PAZOPANIB HYDROCHLORIDE
     Indication: METASTATIC RENAL CELL CARCINOMA
     Dosage: 800 MG, QD
     Route: 048
     Dates: start: 20160730, end: 20160816
  6. VOTRIENT [Suspect]
     Active Substance: PAZOPANIB HYDROCHLORIDE
     Dosage: 400 MG, QD
     Route: 048
     Dates: start: 20160817, end: 20170602
  7. ESCITALOPRAM [Concomitant]
     Active Substance: ESCITALOPRAM OXALATE
     Indication: DEPRESSION
     Dosage: 10 MG, TID
     Route: 048
     Dates: start: 2006
  8. ESCITALOPRAM [Concomitant]
     Active Substance: ESCITALOPRAM OXALATE
     Indication: DEPRESSION
     Dosage: DAILY DOSE: 30 MG MILLIGRAM(S) EVERY DAY
     Route: 048
     Dates: start: 2006
  9. MIRTAZAPIN RATIOPHARM [Concomitant]
     Dosage: 30 MG, QD
     Route: 048
     Dates: start: 201609
  10. TAMSULOSIN RATIOPHARM [Concomitant]
     Indication: BENIGN PROSTATIC HYPERPLASIA
     Dosage: 0.4 MG, QD
     Route: 048
     Dates: start: 2011
  11. MIRTAZAPIN RATIOPHARM [Concomitant]
     Indication: DEPRESSION
  12. ASS-RATIOPHARM [Concomitant]
     Active Substance: ASPIRIN
     Indication: TRANSIENT ISCHAEMIC ATTACK
     Dosage: DAILY DOSE: 100 MG MILLIGRAM(S) EVERY DAY
     Route: 048
     Dates: start: 201605
  13. RISPERIDON-RATIOPHARM [Concomitant]
     Dosage: 2 MG, QD
     Route: 048
     Dates: start: 201609

REACTIONS (6)
  - C-reactive protein increased [Recovered/Resolved]
  - Pneumonia [Recovered/Resolved]
  - Headache [Recovered/Resolved]
  - Hypertension [Recovered/Resolved]
  - Haemoptysis [Recovered/Resolved]
  - Hair colour changes [Not Recovered/Not Resolved]

NARRATIVE: CASE EVENT DATE: 20160812
